FAERS Safety Report 25507610 (Version 1)
Quarter: 2025Q3

REPORT INFORMATION
  Report Type: Report from Study
  Country: CN (occurrence: CN)
  Receive Date: 20250703
  Receipt Date: 20250703
  Transmission Date: 20251020
  Serious: Yes (Other)
  Sender: JOHNSON AND JOHNSON
  Company Number: CN-JNJFOC-20250703347

PATIENT
  Age: 47 Year
  Sex: Male

DRUGS (1)
  1. XARELTO [Suspect]
     Active Substance: RIVAROXABAN
     Indication: Portal vein thrombosis
     Route: 048

REACTIONS (4)
  - Haemoglobinuria [Recovered/Resolved]
  - Haematuria [Unknown]
  - Product use in unapproved indication [Unknown]
  - Product prescribing issue [Unknown]
